FAERS Safety Report 16773864 (Version 1)
Quarter: 2019Q3

REPORT INFORMATION
  Report Type: Spontaneous
  Country: US (occurrence: US)
  Receive Date: 20190904
  Receipt Date: 20190904
  Transmission Date: 20191005
  Serious: Yes (Hospitalization, Other)
  Sender: FDA-Public Use
  Company Number: US-AUROBINDO-AUR-APL-2019-056412

PATIENT

DRUGS (2)
  1. VANCOMYCIN [Suspect]
     Active Substance: VANCOMYCIN
     Indication: PERITONITIS
     Dosage: UNK
     Route: 042
  2. VANCOMYCIN [Suspect]
     Active Substance: VANCOMYCIN
     Indication: STAPHYLOCOCCAL INFECTION

REACTIONS (1)
  - Erythema multiforme [Recovering/Resolving]
